FAERS Safety Report 8402641-3 (Version None)
Quarter: 2012Q2

REPORT INFORMATION
  Report Type: 
  Country: None (occurrence: None)
  Receive Date: 20120601
  Receipt Date: 20120528
  Transmission Date: 20120825
  Serious: Yes (Hospitalization)
  Sender: FDA-Public Use
  Company Number: TW-ROCHE-1072992

PATIENT
  Sex: Male

DRUGS (4)
  1. LEUCOVORIN CALCIUM [Suspect]
     Indication: COLON CANCER METASTATIC
     Dates: start: 20120323, end: 20120511
  2. AVASTIN [Suspect]
     Indication: COLON CANCER METASTATIC
     Route: 042
     Dates: start: 20120323, end: 20120511
  3. FLUOROURACIL [Suspect]
     Indication: COLON CANCER METASTATIC
     Dates: start: 20120323, end: 20120511
  4. IRINOTECAN HCL [Suspect]
     Indication: COLON CANCER METASTATIC
     Dates: start: 20120323, end: 20120511

REACTIONS (1)
  - TUMOUR RUPTURE [None]
